FAERS Safety Report 4688403-1 (Version None)
Quarter: 2005Q2

REPORT INFORMATION
  Report Type: 
  Country: None (occurrence: None)
  Receive Date: 20050610
  Receipt Date: 20050610
  Transmission Date: 20051028
  Serious: Yes (Life-Threatening, Hospitalization)
  Sender: FDA-Public Use
  Company Number: None

PATIENT
  Age: 60 Year
  Sex: Male
  Weight: 87.7 kg

DRUGS (10)
  1. DEXAMETHASONE [Suspect]
     Indication: MULTIPLE MYELOMA
     Dosage: 8 MG BID ORAL
     Route: 048
     Dates: start: 20050405, end: 20050429
  2. VELCADE [Suspect]
     Indication: MULTIPLE MYELOMA
  3. MORPHINE SULFATE [Concomitant]
  4. OXYCODONE HCL [Concomitant]
  5. SORBITOL [Concomitant]
  6. ALLOPURINOL [Concomitant]
  7. RANITIDINE HCL [Concomitant]
  8. ALBUTEROL SO4 [Concomitant]
  9. FUROSEMIDE [Concomitant]
  10. DEXAMETHASONE [Concomitant]

REACTIONS (5)
  - ERYTHEMA [None]
  - HYPERCAPNIA [None]
  - OEDEMA PERIPHERAL [None]
  - PSEUDOMONAS INFECTION [None]
  - SEPTIC SHOCK [None]
